FAERS Safety Report 15318850 (Version 1)
Quarter: 2018Q3

REPORT INFORMATION
  Report Type: Spontaneous
  Country: US (occurrence: US)
  Receive Date: 20180819
  Receipt Date: 20180819
  Transmission Date: 20181010
  Serious: No
  Sender: FDA-Public Use
  Company Number: None

PATIENT
  Age: 25 Year
  Sex: Female
  Weight: 64.41 kg

DRUGS (1)
  1. MIRENA [Suspect]
     Active Substance: LEVONORGESTREL
     Dates: start: 20170321, end: 20171116

REACTIONS (3)
  - Medical device site pain [None]
  - Pelvic pain [None]
  - Abdominal pain [None]

NARRATIVE: CASE EVENT DATE: 20171116
